FAERS Safety Report 25766223 (Version 1)
Quarter: 2025Q3

REPORT INFORMATION
  Report Type: Spontaneous
  Country: US (occurrence: None)
  Receive Date: 20250904
  Receipt Date: 20250904
  Transmission Date: 20251020
  Serious: Yes (Hospitalization)
  Sender: FDA-CTU
  Company Number: None

PATIENT
  Sex: Male

DRUGS (10)
  1. OPSUMIT [Suspect]
     Active Substance: MACITENTAN
     Indication: Pulmonary arterial hypertension
     Dosage: 10 MG DAILY ORAL
     Route: 048
     Dates: start: 20211206
  2. REMODULIN [Suspect]
     Active Substance: TREPROSTINIL
  3. TRIAMCINOLONE ACET CRM [Concomitant]
  4. UPTRAVI [Concomitant]
     Active Substance: SELEXIPAG
  5. OPSUMIT [Concomitant]
     Active Substance: MACITENTAN
  6. REMUNITY CART W/FILL AID [Concomitant]
  7. WINREVAIR [Concomitant]
     Active Substance: SOTATERCEPT-CSRK
  8. LIDOCAINE/PRILOCAINE CRM [Concomitant]
  9. C-FORMULATION D W/CLONI 0.1% [Concomitant]
  10. TADALAFIL [Concomitant]
     Active Substance: TADALAFIL

REACTIONS (1)
  - Lung transplant [None]
